APPROVED DRUG PRODUCT: DEXMEDETOMIDINE HYDROCHLORIDE
Active Ingredient: DEXMEDETOMIDINE HYDROCHLORIDE
Strength: EQ 200MCG BASE/50ML (EQ 4MCG BASE/ML)
Dosage Form/Route: INJECTABLE;INJECTION
Application: A208129 | Product #002 | TE Code: AP
Applicant: FRESENIUS KABI USA LLC
Approved: Nov 29, 2018 | RLD: No | RS: No | Type: RX